FAERS Safety Report 23416519 (Version 1)
Quarter: 2024Q1

REPORT INFORMATION
  Report Type: Spontaneous
  Country: US (occurrence: None)
  Receive Date: 20240117
  Receipt Date: 20240117
  Transmission Date: 20240409
  Serious: Yes (Death)
  Sender: FDA-Public Use
  Company Number: None

PATIENT
  Age: 60 Year
  Weight: 98.88 kg

DRUGS (2)
  1. REMDESIVIR [Suspect]
     Active Substance: REMDESIVIR
     Indication: COVID-19
     Dosage: INTO A VEIN
     Route: 042
     Dates: start: 20210802, end: 20210806
  2. SYNTHROID [Concomitant]
     Active Substance: LEVOTHYROXINE SODIUM

REACTIONS (5)
  - Respiratory symptom [None]
  - Cardiovascular symptom [None]
  - Myocardial infarction [None]
  - Tachycardia [None]
  - Acute kidney injury [None]

NARRATIVE: CASE EVENT DATE: 20210805
